FAERS Safety Report 6438383-3 (Version None)
Quarter: 2009Q4

REPORT INFORMATION
  Report Type: 
  Country: None (occurrence: None)
  Receive Date: 20091109
  Receipt Date: 20091024
  Transmission Date: 20100525
  Serious: Yes (Other)
  Sender: FDA-Public Use
  Company Number: ENT-2009-0096

PATIENT
  Age: 67 Year
  Sex: Male

DRUGS (12)
  1. COMTAN [Suspect]
     Indication: DRUG EFFECT DECREASED
     Dosage: 400 MG ORAL; 300 MG ORAL; 200 MG ORAL;
     Route: 048
     Dates: start: 20090324, end: 20090330
  2. COMTAN [Suspect]
     Indication: PARKINSON'S DISEASE
     Dosage: 400 MG ORAL; 300 MG ORAL; 200 MG ORAL;
     Route: 048
     Dates: start: 20090324, end: 20090330
  3. COMTAN [Suspect]
     Indication: DRUG EFFECT DECREASED
     Dosage: 400 MG ORAL; 300 MG ORAL; 200 MG ORAL;
     Route: 048
     Dates: start: 20090331, end: 20090501
  4. COMTAN [Suspect]
     Indication: PARKINSON'S DISEASE
     Dosage: 400 MG ORAL; 300 MG ORAL; 200 MG ORAL;
     Route: 048
     Dates: start: 20090331, end: 20090501
  5. COMTAN [Suspect]
     Indication: DRUG EFFECT DECREASED
     Dosage: 400 MG ORAL; 300 MG ORAL; 200 MG ORAL;
     Route: 048
     Dates: start: 20090502, end: 20090509
  6. COMTAN [Suspect]
     Indication: PARKINSON'S DISEASE
     Dosage: 400 MG ORAL; 300 MG ORAL; 200 MG ORAL;
     Route: 048
     Dates: start: 20090502, end: 20090509
  7. CARBIDOPA AND LEVODOPA [Concomitant]
  8. SELEGILINE HYDROCHLORIDE [Concomitant]
  9. PERMAX [Concomitant]
  10. SYMMETREL [Concomitant]
  11. NORVASC [Concomitant]
  12. LENDORMIN [Concomitant]

REACTIONS (10)
  - BLOOD ALKALINE PHOSPHATASE INCREASED [None]
  - BLOOD CREATININE INCREASED [None]
  - CONDITION AGGRAVATED [None]
  - DYSKINESIA [None]
  - FATIGUE [None]
  - HALLUCINATION [None]
  - HYPOKINESIA [None]
  - LIBIDO INCREASED [None]
  - RESTLESSNESS [None]
  - SPEECH DISORDER [None]
